FAERS Safety Report 5346670-5 (Version None)
Quarter: 2007Q2

REPORT INFORMATION
  Report Type: 
  Country: None (occurrence: None)
  Receive Date: 20070605
  Receipt Date: 20070525
  Transmission Date: 20071010
  Serious: Yes (Other)
  Sender: FDA-Public Use
  Company Number: JP-PFIZER INC-2007041048

PATIENT
  Sex: Female
  Weight: 49 kg

DRUGS (2)
  1. NORVASC [Suspect]
     Indication: HYPERTENSION
     Dosage: DAILY DOSE:2.5MG
     Route: 048
     Dates: start: 20070308, end: 20070518
  2. VESICARE [Suspect]
     Indication: HYPERTONIC BLADDER
     Route: 048
     Dates: start: 20061101, end: 20070517

REACTIONS (1)
  - PANCYTOPENIA [None]
